FAERS Safety Report 6613836-3 (Version None)
Quarter: 2010Q1

REPORT INFORMATION
  Report Type: 
  Country: None (occurrence: None)
  Receive Date: 20100304
  Receipt Date: 20100302
  Transmission Date: 20100710
  Serious: Yes (Other)
  Sender: FDA-Public Use
  Company Number: JP-SANOFI-AVENTIS-2010SA011875

PATIENT

DRUGS (1)
  1. DAONIL [Suspect]
     Route: 048

REACTIONS (1)
  - PANCREATITIS ACUTE [None]
